FAERS Safety Report 25516557 (Version 4)
Quarter: 2025Q3

REPORT INFORMATION
  Report Type: Spontaneous
  Country: EU (occurrence: EU)
  Receive Date: 20250704
  Receipt Date: 20250729
  Transmission Date: 20251021
  Serious: Yes (Hospitalization, Other)
  Sender: JOHNSON AND JOHNSON
  Company Number: EU-JNJFOC-20250703878

PATIENT
  Age: 75 Year
  Sex: Male

DRUGS (9)
  1. ABIRATERONE ACETATE [Suspect]
     Active Substance: ABIRATERONE ACETATE
     Indication: Prostate cancer stage IV
     Route: 048
  2. ABIRATERONE ACETATE [Suspect]
     Active Substance: ABIRATERONE ACETATE
     Indication: Prostate cancer metastatic
  3. ABIRATERONE ACETATE [Suspect]
     Active Substance: ABIRATERONE ACETATE
     Indication: Hormone-refractory prostate cancer
  4. DOCETAXEL [Suspect]
     Active Substance: DOCETAXEL
     Indication: Hormone-refractory prostate cancer
     Route: 065
  5. DOCETAXEL [Suspect]
     Active Substance: DOCETAXEL
     Indication: Prostate cancer metastatic
  6. LEUPROLIDE ACETATE [Interacting]
     Active Substance: LEUPROLIDE ACETATE
     Indication: Prostate cancer metastatic
     Dates: start: 2013
  7. LEUPROLIDE ACETATE [Interacting]
     Active Substance: LEUPROLIDE ACETATE
     Indication: Hormone-refractory prostate cancer
  8. LEUPROLIDE ACETATE [Interacting]
     Active Substance: LEUPROLIDE ACETATE
     Indication: Prostate cancer
  9. ENZALUTAMIDE [Interacting]
     Active Substance: ENZALUTAMIDE
     Indication: Hormone-refractory prostate cancer
     Route: 065

REACTIONS (6)
  - Electrocardiogram QT prolonged [Unknown]
  - Drug ineffective [Unknown]
  - Drug interaction [Unknown]
  - Disease progression [Unknown]
  - Prostate cancer stage IV [Not Recovered/Not Resolved]
  - Metastases to bone [Not Recovered/Not Resolved]
